FAERS Safety Report 19667506 (Version 1)
Quarter: 2021Q3

REPORT INFORMATION
  Report Type: Spontaneous
  Country: CN (occurrence: CN)
  Receive Date: 20210806
  Receipt Date: 20210806
  Transmission Date: 20211014
  Serious: Yes (Other)
  Sender: FDA-Public Use
  Company Number: CN-ROCHE-2882565

PATIENT
  Age: 76 Year
  Sex: Male

DRUGS (17)
  1. CYCLOPHOSPHAMIDE. [Concomitant]
     Active Substance: CYCLOPHOSPHAMIDE
     Indication: NON-HODGKIN^S LYMPHOMA
     Dosage: ON 25/DEC/2020, 16/JAN/2021 AND 08/FEB/2021
     Dates: start: 20201203
  2. VINCRISTINE [Concomitant]
     Active Substance: VINCRISTINE
     Indication: DIFFUSE LARGE B-CELL LYMPHOMA
  3. GEMCITABINE. [Concomitant]
     Active Substance: GEMCITABINE
     Indication: NON-HODGKIN^S LYMPHOMA
     Dates: start: 20210309
  4. VINCRISTINE [Concomitant]
     Active Substance: VINCRISTINE
     Indication: NON-HODGKIN^S LYMPHOMA
     Dosage: ON 25/DEC/2020, 16/JAN/2021 AND 08/FEB/2021
     Dates: start: 20201203
  5. XELODA [Suspect]
     Active Substance: CAPECITABINE
     Indication: RECTAL ADENOCARCINOMA
     Route: 048
     Dates: start: 2018
  6. MABTHERA [Suspect]
     Active Substance: RITUXIMAB
     Indication: NON-HODGKIN^S LYMPHOMA
     Dosage: HE RECEIVED SUBSEQUENT DOSE OF RITUXIMAB ON 25/DEC/2020, 16/JAN/2021 AND 08/FEB/2021
     Route: 065
     Dates: start: 20201203
  7. AVASTIN [Suspect]
     Active Substance: BEVACIZUMAB
     Indication: RECTAL ADENOCARCINOMA
     Route: 065
     Dates: start: 2018
  8. MABTHERA [Suspect]
     Active Substance: RITUXIMAB
     Indication: DIFFUSE LARGE B-CELL LYMPHOMA
     Route: 065
     Dates: start: 20210309
  9. GEMCITABINE. [Concomitant]
     Active Substance: GEMCITABINE
     Indication: DIFFUSE LARGE B-CELL LYMPHOMA
  10. OXALIPLATIN. [Concomitant]
     Active Substance: OXALIPLATIN
     Indication: DIFFUSE LARGE B-CELL LYMPHOMA
  11. CYCLOPHOSPHAMIDE. [Concomitant]
     Active Substance: CYCLOPHOSPHAMIDE
     Indication: DIFFUSE LARGE B-CELL LYMPHOMA
  12. DEXAMETHASONE. [Concomitant]
     Active Substance: DEXAMETHASONE
     Indication: NON-HODGKIN^S LYMPHOMA
     Dosage: ON 25/DEC/2020, 16/JAN/2021 AND 08/FEB/2021
     Dates: start: 20201203
  13. DEXAMETHASONE. [Concomitant]
     Active Substance: DEXAMETHASONE
     Indication: DIFFUSE LARGE B-CELL LYMPHOMA
  14. OXALIPLATIN. [Concomitant]
     Active Substance: OXALIPLATIN
     Indication: NON-HODGKIN^S LYMPHOMA
     Dates: start: 20210309
  15. ZANUBRUTINIB [Concomitant]
     Active Substance: ZANUBRUTINIB
     Indication: DIFFUSE LARGE B-CELL LYMPHOMA
  16. IRINOTECAN [Concomitant]
     Active Substance: IRINOTECAN
     Indication: RECTAL ADENOCARCINOMA
     Dates: start: 2018
  17. ZANUBRUTINIB [Concomitant]
     Active Substance: ZANUBRUTINIB
     Indication: NON-HODGKIN^S LYMPHOMA
     Route: 048
     Dates: start: 2021, end: 20210708

REACTIONS (2)
  - Myelosuppression [Unknown]
  - Rash [Unknown]
